FAERS Safety Report 20769414 (Version 1)
Quarter: 2022Q2

REPORT INFORMATION
  Report Type: Spontaneous
  Country: US (occurrence: US)
  Receive Date: 20220429
  Receipt Date: 20220429
  Transmission Date: 20220721
  Serious: No
  Sender: FDA-Public Use
  Company Number: US-BAYER-2022A054890

PATIENT
  Age: 36 Year
  Sex: Female

DRUGS (2)
  1. MIRENA [Suspect]
     Active Substance: LEVONORGESTREL
     Indication: Uterine cancer
     Dosage: 20?G/DAY
     Route: 015
     Dates: start: 20220322
  2. MIRENA [Suspect]
     Active Substance: LEVONORGESTREL
     Indication: Infertility female

REACTIONS (3)
  - Hypersensitivity [None]
  - Off label use [None]
  - Product use in unapproved indication [None]
